FAERS Safety Report 15198145 (Version 7)
Quarter: 2018Q3

REPORT INFORMATION
  Report Type: Spontaneous
  Country: FR (occurrence: FR)
  Receive Date: 20180725
  Receipt Date: 20180921
  Transmission Date: 20181010
  Serious: Yes (Hospitalization, Other)
  Sender: FDA-Public Use
  Company Number: PHHY2018FR055633

PATIENT
  Age: 79 Year
  Sex: Male
  Weight: 80 kg

DRUGS (20)
  1. ALPRAZOLAM. [Concomitant]
     Active Substance: ALPRAZOLAM
     Indication: PRODUCT USED FOR UNKNOWN INDICATION
     Dosage: 1.5 MG, QD
     Route: 048
  2. OTEZLA [Suspect]
     Active Substance: APREMILAST
     Indication: PSORIASIS
     Dosage: 30 MG, QD
     Route: 065
     Dates: start: 20180423, end: 20180519
  3. NATISPRAY [Concomitant]
     Active Substance: NITROGLYCERIN
     Dosage: UNK
     Route: 048
  4. VALSARTAN. [Concomitant]
     Active Substance: VALSARTAN
     Dosage: 160 MG, QD
     Route: 048
  5. SINGULAIR [Concomitant]
     Active Substance: MONTELUKAST SODIUM
     Indication: PRODUCT USED FOR UNKNOWN INDICATION
     Dosage: 10 MG, QD
     Route: 048
  6. EZETROL [Concomitant]
     Active Substance: EZETIMIBE
     Indication: HYPERTENSION
     Dosage: 10 MG, QD
     Route: 048
  7. ANTARENE [Suspect]
     Active Substance: IBUPROFEN SODIUM
     Indication: DIZZINESS
  8. NATISPRAY [Concomitant]
     Active Substance: NITROGLYCERIN
     Indication: PRODUCT USED FOR UNKNOWN INDICATION
     Dosage: 3 OT, QD
     Route: 048
  9. BIFIDOBACTERIUM INFANTIS [Concomitant]
     Indication: PRODUCT USED FOR UNKNOWN INDICATION
     Dosage: UNK
     Route: 048
  10. VOLTAREN [Suspect]
     Active Substance: DICLOFENAC SODIUM
     Indication: PRODUCT USED FOR UNKNOWN INDICATION
     Dosage: UNK
     Route: 065
     Dates: start: 20180515
  11. ANTARENE [Suspect]
     Active Substance: IBUPROFEN SODIUM
     Indication: HEADACHE
     Dosage: 1200 MG, QD
     Route: 048
     Dates: start: 20180515
  12. ANTARENE [Suspect]
     Active Substance: IBUPROFEN SODIUM
     Indication: ASTHENIA
  13. OTEZLA [Suspect]
     Active Substance: APREMILAST
     Dosage: 30 MG, QD
     Route: 065
     Dates: start: 20180423, end: 20180620
  14. BIFIDOBACTERIUM INFANTIS [Concomitant]
     Dosage: UNK
     Route: 048
  15. LERCANIDIPINE [Suspect]
     Active Substance: LERCANIDIPINE
     Indication: PRODUCT USED FOR UNKNOWN INDICATION
     Dosage: UNK
     Route: 065
     Dates: start: 20180515
  16. VALSARTAN. [Concomitant]
     Active Substance: VALSARTAN
     Indication: HYPERTENSION
     Dosage: 160 MG, QD
     Route: 048
  17. METEOSPASMYL [Concomitant]
     Indication: PRODUCT USED FOR UNKNOWN INDICATION
     Dosage: 3 OT, QD
     Route: 048
  18. TRIMEBUTINE [Concomitant]
     Active Substance: TRIMEBUTINE
     Indication: PRODUCT USED FOR UNKNOWN INDICATION
     Dosage: 600 MG, QD
     Route: 048
  19. EZETROL [Concomitant]
     Active Substance: EZETIMIBE
     Indication: FATIGUE
  20. VALSARTAN. [Concomitant]
     Active Substance: VALSARTAN
     Dosage: 160/12.5 MG
     Route: 048

REACTIONS (14)
  - Arthralgia [Unknown]
  - Gait disturbance [Unknown]
  - Tremor [Unknown]
  - Ophthalmoplegia [Unknown]
  - Asthenia [Unknown]
  - Depression suicidal [Unknown]
  - Depression [Unknown]
  - Diarrhoea [Unknown]
  - General physical health deterioration [Unknown]
  - Weight decreased [Not Recovered/Not Resolved]
  - Pyrexia [Unknown]
  - Abdominal pain upper [Unknown]
  - Decreased appetite [Unknown]
  - Abdominal pain [Unknown]

NARRATIVE: CASE EVENT DATE: 201805
